FAERS Safety Report 18680492 (Version 4)
Quarter: 2022Q2

REPORT INFORMATION
  Report Type: Report from Study
  Country: JP (occurrence: None)
  Receive Date: 20201230
  Receipt Date: 20220630
  Transmission Date: 20220721
  Serious: Yes (Hospitalization)
  Sender: FDA-Public Use
  Company Number: JP-ROCHE-2167608

PATIENT
  Age: 75 Year
  Sex: Female
  Weight: 52.8 kg

DRUGS (84)
  1. ATEZOLIZUMAB [Suspect]
     Active Substance: ATEZOLIZUMAB
     Indication: Ovarian cancer
     Dosage: DATE OF MOST RECENT DOSE OF ATEZOLIZUMAB PRIOR TO EVENT ONSET (FIRST EPISODE OF PYELONEPHRITIS): 22/
     Route: 042
     Dates: start: 20180511
  2. BEVACIZUMAB [Suspect]
     Active Substance: BEVACIZUMAB
     Indication: Ovarian cancer
     Dosage: DATE OF MOST RECENT DOSE OF BEVACIZUMAB (800 MG) PRIOR TO EVENT ONSET (EPISODES OF PYELONEPHRITIS):
     Route: 042
     Dates: start: 20180511
  3. PACLITAXEL [Suspect]
     Active Substance: PACLITAXEL
     Indication: Ovarian cancer
     Dosage: DATE OF MOST RECENT DOSE OF PACLITAXEL (240 MG) PRIOR TO EVENT ONSET (FIRST EPISODE OF PYELONEPHRITI
     Route: 042
     Dates: start: 20180511
  4. CARBOPLATIN [Suspect]
     Active Substance: CARBOPLATIN
     Indication: Ovarian cancer
     Dosage: DATE OF MOST RECENT DOSE OF CARBOPLATIN (450 MG) PRIOR TO EVENT ONSET (FIRST EPISODE OF PYELONEPHRIT
     Route: 042
     Dates: start: 20180511
  5. VONOPRAZAN FUMARATE [Concomitant]
     Active Substance: VONOPRAZAN FUMARATE
     Indication: Chronic gastritis
  6. TIQUIZIUM BROMIDE [Concomitant]
     Active Substance: TIQUIZIUM BROMIDE
     Indication: Chronic gastritis
  7. ECABET SODIUM [Concomitant]
     Active Substance: ECABET SODIUM
     Indication: Chronic gastritis
     Dates: end: 20190318
  8. GASLON [Concomitant]
     Active Substance: IRSOGLADINE MALEATE
     Indication: Chronic gastritis
     Dates: start: 20181203
  9. BIFIDOBACTERIUM SPP. [Concomitant]
     Active Substance: BIFIDOBACTERIUM SPP.
     Indication: Chronic gastritis
  10. EDOXABAN TOSYLATE [Concomitant]
     Active Substance: EDOXABAN TOSYLATE
     Indication: Deep vein thrombosis
     Dates: start: 20180412, end: 20180722
  11. EDOXABAN TOSYLATE [Concomitant]
     Active Substance: EDOXABAN TOSYLATE
     Dates: start: 20180731
  12. MAGNESIUM HYDROXIDE [Concomitant]
     Active Substance: MAGNESIUM HYDROXIDE
     Indication: Constipation prophylaxis
     Dates: start: 20180407
  13. LOXOPROFEN [Concomitant]
     Active Substance: LOXOPROFEN
     Indication: Tumour pain
     Dates: start: 20180406
  14. LOXOPROFEN [Concomitant]
     Active Substance: LOXOPROFEN
     Indication: Procedural pain
     Dosage: POSTOPERATIVE PAIN
     Dates: start: 20180802, end: 20180805
  15. REBAMIPIDE [Concomitant]
     Active Substance: REBAMIPIDE
     Indication: Chronic gastritis
     Dates: start: 20180406, end: 201805
  16. REBAMIPIDE [Concomitant]
     Active Substance: REBAMIPIDE
     Dates: start: 20180802, end: 20180805
  17. EURAX [Concomitant]
     Active Substance: CROTAMITON
     Indication: Pruritus
     Dates: start: 20180410
  18. EURAX [Concomitant]
     Active Substance: CROTAMITON
     Dates: start: 20180727, end: 20180727
  19. CALCIUM CHLORIDE\POTASSIUM CHLORIDE\SODIUM ACETATE\SODIUM CHLORIDE [Concomitant]
     Active Substance: CALCIUM CHLORIDE\POTASSIUM CHLORIDE\SODIUM ACETATE\SODIUM CHLORIDE
     Indication: Prophylaxis
     Dosage: SURGERY
     Dates: start: 20180511
  20. CALCIUM CHLORIDE\POTASSIUM CHLORIDE\SODIUM ACETATE\SODIUM CHLORIDE [Concomitant]
     Active Substance: CALCIUM CHLORIDE\POTASSIUM CHLORIDE\SODIUM ACETATE\SODIUM CHLORIDE
     Dates: start: 20180724, end: 20180724
  21. CALCIUM CHLORIDE\POTASSIUM CHLORIDE\SODIUM ACETATE\SODIUM CHLORIDE [Concomitant]
     Active Substance: CALCIUM CHLORIDE\POTASSIUM CHLORIDE\SODIUM ACETATE\SODIUM CHLORIDE
     Dates: start: 20180821, end: 20180821
  22. CALCIUM CHLORIDE\POTASSIUM CHLORIDE\SODIUM ACETATE\SODIUM CHLORIDE [Concomitant]
     Active Substance: CALCIUM CHLORIDE\POTASSIUM CHLORIDE\SODIUM ACETATE\SODIUM CHLORIDE
     Dates: start: 20180911, end: 20180911
  23. CALONAL [Concomitant]
     Active Substance: ACETAMINOPHEN
     Indication: Myalgia
     Dates: start: 20180527
  24. CALONAL [Concomitant]
     Active Substance: ACETAMINOPHEN
     Indication: Abdominal pain
  25. CALONAL [Concomitant]
     Active Substance: ACETAMINOPHEN
     Indication: Arthralgia
  26. CALONAL [Concomitant]
     Active Substance: ACETAMINOPHEN
     Indication: Headache
  27. LOXOPROFEN SODIUM [Concomitant]
     Active Substance: LOXOPROFEN SODIUM
     Indication: Myalgia
     Dates: start: 20180604, end: 20181116
  28. LOXOPROFEN SODIUM [Concomitant]
     Active Substance: LOXOPROFEN SODIUM
     Indication: Arthralgia
  29. RILMAZAFONE [Concomitant]
     Active Substance: RILMAZAFONE
     Indication: Insomnia
     Dates: start: 20180511, end: 20190926
  30. LYRICA [Concomitant]
     Active Substance: PREGABALIN
     Indication: Peripheral sensory neuropathy
     Dates: start: 20180621
  31. DEXTROSE [Concomitant]
     Active Substance: DEXTROSE
     Indication: Prophylaxis
     Dates: start: 20180722, end: 20180723
  32. VITAMEDIN (JAPAN) [Concomitant]
     Indication: Vitamin supplementation
     Dates: start: 20180722, end: 20180724
  33. GLYCERIN [Concomitant]
     Active Substance: GLYCERIN
     Indication: Premedication
     Dosage: ENEMA
     Dates: start: 20180724, end: 20180724
  34. CALCIUM CHLORIDE ANHYDROUS\POTASSIUM CHLORIDE\SODIUM CHLORIDE\SODIUM L [Concomitant]
     Active Substance: CALCIUM CHLORIDE ANHYDROUS\POTASSIUM CHLORIDE\SODIUM CHLORIDE\SODIUM LACTATE
     Indication: Prophylaxis
     Dates: start: 20180724, end: 20180724
  35. FLUMARIN (JAPAN) [Concomitant]
     Indication: Prophylaxis
     Dates: start: 20180724, end: 20180726
  36. DEXTROSE\SODIUM CHLORIDE\SODIUM LACTATE [Concomitant]
     Active Substance: DEXTROSE\SODIUM CHLORIDE\SODIUM LACTATE
     Indication: Prophylaxis
     Dates: start: 20180725, end: 20180725
  37. ACETAMINOPHEN [Concomitant]
     Active Substance: ACETAMINOPHEN
     Indication: Procedural pain
     Dates: start: 20180724, end: 20180729
  38. ACETAMINOPHEN [Concomitant]
     Active Substance: ACETAMINOPHEN
     Indication: Pyelonephritis
     Dates: start: 20180808, end: 20180808
  39. ACETAMINOPHEN [Concomitant]
     Active Substance: ACETAMINOPHEN
     Dates: start: 20180920, end: 20180924
  40. VOLUVEN [Concomitant]
     Active Substance: HYDROXYETHYL STARCH 130/0.4
     Indication: Surgery
     Dates: start: 20180724, end: 20180724
  41. EPHEDRINE [Concomitant]
     Active Substance: EPHEDRINE
     Indication: Surgery
     Dates: start: 20180724, end: 20180724
  42. NEOSYNESIN [PHENYLEPHRINE HYDROCHLORIDE] [Concomitant]
     Indication: Surgery
     Dates: start: 20180724, end: 20180724
  43. FLURBIPROFEN AXETIL [Concomitant]
     Active Substance: FLURBIPROFEN AXETIL
     Indication: Prophylaxis
     Dates: start: 20180724, end: 20180724
  44. BRIDION [Concomitant]
     Active Substance: SUGAMMADEX
     Indication: Surgery
     Dates: start: 20180724, end: 20180724
  45. DIPRIVAN [Concomitant]
     Active Substance: PROPOFOL
     Indication: Surgery
     Dates: start: 20180724, end: 20180724
  46. ROCURONIUM [Concomitant]
     Active Substance: ROCURONIUM BROMIDE
     Indication: Surgery
     Dates: start: 20180724, end: 20180724
  47. FENTANYL [Concomitant]
     Active Substance: FENTANYL
     Indication: Surgery
     Dates: start: 20180724, end: 20180724
  48. FENTANYL [Concomitant]
     Active Substance: FENTANYL
     Dates: start: 20180725, end: 20180727
  49. REMIFENTANIL [Concomitant]
     Active Substance: REMIFENTANIL
     Indication: Surgery
     Dates: start: 20180724, end: 20180724
  50. HUMAN RED BLOOD CELL [Concomitant]
     Active Substance: HUMAN RED BLOOD CELL
     Indication: Surgery
     Dates: start: 20180724, end: 20180724
  51. LASIX [Concomitant]
     Active Substance: FUROSEMIDE
     Indication: Prophylaxis
     Dates: start: 20180725, end: 20180725
  52. PHENYLEPHRINE HYDROCHLORIDE [Concomitant]
     Active Substance: PHENYLEPHRINE HYDROCHLORIDE
     Indication: Surgery
     Dates: start: 20180724, end: 20180724
  53. HEPARINOID [Concomitant]
     Indication: Dry skin
     Dates: start: 20180727
  54. HEPARINOID [Concomitant]
     Indication: Pruritus
     Dates: start: 20181025
  55. WHITE PETROLATUM [Concomitant]
     Active Substance: PETROLATUM
     Indication: Epidermolysis
     Dates: start: 20180817
  56. ORTEXER [Concomitant]
     Indication: Stomatitis
     Dates: start: 20180818, end: 20180819
  57. ORTEXER [Concomitant]
     Indication: Oral pain
     Route: 061
     Dates: start: 20180924, end: 20180925
  58. DIPHENHYDRAMINE [Concomitant]
     Active Substance: DIPHENHYDRAMINE
     Dates: start: 20180821, end: 20180821
  59. DIPHENHYDRAMINE [Concomitant]
     Active Substance: DIPHENHYDRAMINE
     Dates: start: 20180911, end: 20180911
  60. DIPHENHYDRAMINE [Concomitant]
     Active Substance: DIPHENHYDRAMINE
     Dates: start: 20181023, end: 20181023
  61. ALOXI [Concomitant]
     Active Substance: PALONOSETRON HYDROCHLORIDE
     Dates: start: 20180821, end: 20180821
  62. ALOXI [Concomitant]
     Active Substance: PALONOSETRON HYDROCHLORIDE
     Dates: start: 20180911, end: 20180911
  63. ALOXI [Concomitant]
     Active Substance: PALONOSETRON HYDROCHLORIDE
     Dates: start: 20181023, end: 20181023
  64. RANITIDINE [Concomitant]
     Active Substance: RANITIDINE
     Dates: start: 20180821, end: 20180821
  65. RANITIDINE [Concomitant]
     Active Substance: RANITIDINE
     Dates: start: 20180911, end: 20180911
  66. RANITIDINE [Concomitant]
     Active Substance: RANITIDINE
     Dates: start: 20181023, end: 20181023
  67. DEXAMETHASONE SODIUM PHOSPHATE [Concomitant]
     Active Substance: DEXAMETHASONE SODIUM PHOSPHATE
     Route: 042
     Dates: start: 20180821, end: 20180821
  68. DEXAMETHASONE SODIUM PHOSPHATE [Concomitant]
     Active Substance: DEXAMETHASONE SODIUM PHOSPHATE
     Route: 042
     Dates: start: 20180911, end: 20180911
  69. DEXAMETHASONE SODIUM PHOSPHATE [Concomitant]
     Active Substance: DEXAMETHASONE SODIUM PHOSPHATE
     Route: 042
     Dates: start: 20181023, end: 20181023
  70. FILGRASTIM [Concomitant]
     Active Substance: FILGRASTIM
     Indication: Neutrophil count decreased
     Dates: start: 20180903, end: 20180903
  71. NAUZELIN [Concomitant]
     Active Substance: DOMPERIDONE
     Indication: Nausea
     Dates: start: 20180914
  72. ROCURONIUM [Concomitant]
     Active Substance: ROCURONIUM BROMIDE
     Dates: start: 20180724, end: 20180724
  73. CALCIUM CHLORIDE\POTASSIUM CHLORIDE\SODIUM ACETATE\SODIUM CHLORIDE [Concomitant]
     Active Substance: CALCIUM CHLORIDE\POTASSIUM CHLORIDE\SODIUM ACETATE\SODIUM CHLORIDE
     Indication: Surgery
     Dates: start: 20181011, end: 20181011
  74. CALCIUM CHLORIDE\POTASSIUM CHLORIDE\SODIUM ACETATE\SODIUM CHLORIDE [Concomitant]
     Active Substance: CALCIUM CHLORIDE\POTASSIUM CHLORIDE\SODIUM ACETATE\SODIUM CHLORIDE
     Dates: start: 20181023, end: 20181023
  75. ANAPEINE [Concomitant]
     Active Substance: ROPIVACAINE HYDROCHLORIDE
     Indication: Surgery
     Dates: start: 20181011, end: 20181011
  76. MIDAZOLAM [Concomitant]
     Active Substance: MIDAZOLAM
     Indication: Surgery
     Dates: start: 20181011, end: 20181011
  77. PENTAZOCINE [Concomitant]
     Active Substance: PENTAZOCINE
     Indication: Surgery
     Dates: start: 20181011, end: 20181011
  78. XYLOCAINE [Concomitant]
     Active Substance: LIDOCAINE HYDROCHLORIDE
     Dates: start: 20181022, end: 20181022
  79. TRANEXAMIC ACID [Concomitant]
     Active Substance: TRANEXAMIC ACID
     Indication: Upper respiratory tract infection
     Dates: start: 20181029, end: 20181103
  80. DEQUALINIUM CHLORIDE [Concomitant]
     Active Substance: DEQUALINIUM CHLORIDE
     Indication: Upper respiratory tract infection
     Dates: start: 20181029
  81. CALCIUM ASPARTATE [Concomitant]
     Active Substance: CALCIUM ASPARTATE
     Indication: Hypocalcaemia
  82. MAGNESIUM SULFATE [Concomitant]
     Active Substance: MAGNESIUM SULFATE
     Indication: Hypomagnesaemia
     Dates: start: 20181114, end: 20181118
  83. XYLOCAINE [Concomitant]
     Active Substance: LIDOCAINE HYDROCHLORIDE
     Dates: start: 20181022, end: 20181022
  84. OLANZAPINE [Concomitant]
     Active Substance: OLANZAPINE
     Indication: Nausea
     Dates: start: 20180914, end: 20180915

REACTIONS (4)
  - Pyelonephritis [Recovered/Resolved]
  - Pyrexia [Recovered/Resolved]
  - Impaired healing [Recovered/Resolved]
  - Hypothyroidism [Recovered/Resolved]

NARRATIVE: CASE EVENT DATE: 20180808
